FAERS Safety Report 15093015 (Version 1)
Quarter: 2018Q3

REPORT INFORMATION
  Report Type: Spontaneous
  Country: ZA (occurrence: ZA)
  Receive Date: 20180629
  Receipt Date: 20180629
  Transmission Date: 20181010
  Serious: Yes (Death)
  Sender: FDA-Public Use
  Company Number: ZA-PFIZER INC-2018263354

PATIENT
  Age: 82 Year
  Sex: Male

DRUGS (7)
  1. PERSANTIN [Suspect]
     Active Substance: DIPYRIDAMOLE
     Dosage: 200 MG, UNK
  2. GALVUS [Suspect]
     Active Substance: VILDAGLIPTIN
     Dosage: 50 MG, UNK
  3. WINTHROP ATORVASTATIN [Suspect]
     Active Substance: ATORVASTATIN SODIUM
     Dosage: 40 MG, UNK
  4. CELEBREX [Suspect]
     Active Substance: CELECOXIB
     Dosage: 200 MG, UNK
  5. ELTROXIN [Suspect]
     Active Substance: LEVOTHYROXINE
     Dosage: 100 UG, UNK
  6. CONCOR [Suspect]
     Active Substance: BISOPROLOL FUMARATE
     Dosage: 5 MG, UNK
  7. PURICOS [Suspect]
     Active Substance: ALLOPURINOL
     Dosage: 300 MG, UNK

REACTIONS (1)
  - Death [Fatal]

NARRATIVE: CASE EVENT DATE: 20180413
